FAERS Safety Report 25968773 (Version 2)
Quarter: 2025Q4

REPORT INFORMATION
  Report Type: Spontaneous
  Country: US (occurrence: US)
  Receive Date: 20251028
  Receipt Date: 20251103
  Transmission Date: 20260117
  Serious: No
  Sender: COSETTE PHARMACEUTICALS INC
  Company Number: US-COSETTE-CP2025US000999

PATIENT
  Age: 63 Year
  Sex: Male

DRUGS (1)
  1. VYLEESI [Suspect]
     Active Substance: BREMELANOTIDE ACETATE
     Indication: Libido decreased
     Dosage: INJECT 1 PEN UNDER THE SKIN AS NEEDED 1 HOUR PRIOR TO SEX. MAX 1 DOSE IN 24 HOURS
     Route: 058

REACTIONS (3)
  - Nausea [Unknown]
  - Therapeutic product effect variable [Unknown]
  - Off label use [Unknown]
